FAERS Safety Report 16164454 (Version 1)
Quarter: 2019Q2

REPORT INFORMATION
  Report Type: Spontaneous
  Country: US (occurrence: US)
  Receive Date: 20190405
  Receipt Date: 20190405
  Transmission Date: 20190711
  Serious: No
  Sender: FDA-Public Use
  Company Number: US-INCYTE CORPORATION-2019IN003283

PATIENT

DRUGS (1)
  1. JAKAFI [Suspect]
     Active Substance: RUXOLITINIB
     Dosage: 10 MG, UNK
     Route: 065
     Dates: start: 201810

REACTIONS (3)
  - Stomatitis [Unknown]
  - Product dose omission [Unknown]
  - Tongue eruption [Unknown]

NARRATIVE: CASE EVENT DATE: 2019
